FAERS Safety Report 4758395-5 (Version None)
Quarter: 2005Q3

REPORT INFORMATION
  Report Type: 
  Country: None (occurrence: None)
  Receive Date: 20050826
  Receipt Date: 20050517
  Transmission Date: 20060218
  Serious: Yes (Hospitalization, Disabling, Other)
  Sender: FDA-Public Use
  Company Number: WAES 0504USA00065

PATIENT
  Age: 69 Year
  Sex: Female
  Weight: 99.7913 kg

DRUGS (15)
  1. ZETIA [Suspect]
     Indication: BLOOD CHOLESTEROL INCREASED
     Dosage: 10 MG/DAILY/PO
     Route: 048
     Dates: start: 20040801, end: 20050215
  2. ZOCOR [Suspect]
     Indication: BLOOD CHOLESTEROL INCREASED
     Dosage: 80 MG/DAILY/PO
     Route: 048
     Dates: end: 20050215
  3. ACIPHEX [Concomitant]
  4. ATROVENT [Concomitant]
  5. AZMACORT [Concomitant]
  6. CARDIZEM [Concomitant]
  7. ECOTRIN [Concomitant]
  8. LASIX [Concomitant]
  9. NASACORT [Concomitant]
  10. SEREVENT [Concomitant]
  11. SYNTHROID [Concomitant]
  12. ALBUTEROL [Concomitant]
  13. ISOSORBIDE MONONITRATE [Concomitant]
  14. METOPROLOL [Concomitant]
  15. OXYGEN [Concomitant]

REACTIONS (2)
  - ADVERSE EVENT [None]
  - RHABDOMYOLYSIS [None]
